FAERS Safety Report 7138403-7 (Version None)
Quarter: 2010Q4

REPORT INFORMATION
  Report Type: 
  Country: None (occurrence: None)
  Receive Date: 20101206
  Receipt Date: 20101129
  Transmission Date: 20110411
  Serious: Yes (Death)
  Sender: FDA-Public Use
  Company Number: US-PERRIGO-10US015113

PATIENT
  Age: 42 Year
  Sex: Female

DRUGS (2)
  1. ACETAMINOPHEN SLOW RELEASE [Suspect]
     Indication: PRODUCT USED FOR UNKNOWN INDICATION
     Dosage: UNK
     Route: 065
  2. PROPOFOL [Suspect]
     Indication: SEDATION
     Dosage: 1.89 GM OVER 17 HOURS
     Route: 042

REACTIONS (11)
  - ACUTE HEPATIC FAILURE [None]
  - BLOOD PH DECREASED [None]
  - CARDIAC ARREST [None]
  - ELECTROMECHANICAL DISSOCIATION [None]
  - HEPATIC ENCEPHALOPATHY [None]
  - HYPOTENSION [None]
  - HYPOXIA [None]
  - MULTI-ORGAN FAILURE [None]
  - OVERDOSE [None]
  - PROPOFOL INFUSION SYNDROME [None]
  - TACHYCARDIA [None]
